FAERS Safety Report 15779257 (Version 1)
Quarter: 2019Q1

REPORT INFORMATION
  Report Type: Spontaneous
  Country: US (occurrence: US)
  Receive Date: 20190101
  Receipt Date: 20190101
  Transmission Date: 20190417
  Serious: No
  Sender: FDA-Public Use
  Company Number: US-PFIZER INC-2018535819

PATIENT
  Age: 9 Year
  Sex: Female

DRUGS (2)
  1. GENOTROPIN [Suspect]
     Active Substance: SOMATROPIN
     Dosage: 0.2 MG, DAILY (ALTERNATE 0.3MG AND 0.2MG DAILY)
  2. GENOTROPIN [Suspect]
     Active Substance: SOMATROPIN
     Indication: BLOOD GROWTH HORMONE ABNORMAL
     Dosage: 0.3 MG, ALTERNATE DAY (ALTERNATE 0.3MG AND 0.2MG DAILY)

REACTIONS (3)
  - Blood urea decreased [Unknown]
  - Blood thyroid stimulating hormone decreased [Unknown]
  - Night sweats [Unknown]
